FAERS Safety Report 8074131-1 (Version None)
Quarter: 2012Q1

REPORT INFORMATION
  Report Type: 
  Country: None (occurrence: None)
  Receive Date: 20120126
  Receipt Date: 20120111
  Transmission Date: 20120608
  Serious: Yes (Other)
  Sender: FDA-Public Use
  Company Number: US-ENDO PHARMACEUTICALS INC.-PROF20120001

PATIENT
  Sex: Male
  Weight: 64.468 kg

DRUGS (1)
  1. PROPAFENONE HCL [Suspect]
     Indication: ATRIAL FIBRILLATION
     Route: 048
     Dates: start: 20120102

REACTIONS (4)
  - PALPITATIONS [None]
  - ANXIETY [None]
  - EXTRASYSTOLES [None]
  - DRUG INEFFECTIVE [None]
